FAERS Safety Report 13721008 (Version 3)
Quarter: 2017Q3

REPORT INFORMATION
  Report Type: Spontaneous
  Country: CH (occurrence: CH)
  Receive Date: 20170706
  Receipt Date: 20170731
  Transmission Date: 20171127
  Serious: Yes (Hospitalization, Other)
  Sender: FDA-Public Use
  Company Number: CH-BAXALTA-2017BLT005398

PATIENT
  Age: 7 Year
  Sex: Male
  Weight: 20.9 kg

DRUGS (11)
  1. METHOTREXATE. [Concomitant]
     Active Substance: METHOTREXATE
     Indication: ACUTE LYMPHOCYTIC LEUKAEMIA RECURRENT
     Dosage: 1 G/SM EVERY 36 HOURS
     Route: 042
     Dates: start: 20161212, end: 20161213
  2. PREDNISOLONE. [Concomitant]
     Active Substance: PREDNISOLONE
     Indication: ACUTE LYMPHOCYTIC LEUKAEMIA RECURRENT
     Dosage: UNK
     Route: 037
     Dates: start: 20161212, end: 20161230
  3. AMPHO-MORONAL [Concomitant]
     Active Substance: AMPHOTERICIN B
     Indication: ANTIFUNGAL PROPHYLAXIS
     Route: 065
  4. CYTARABINE. [Concomitant]
     Active Substance: CYTARABINE
     Dosage: ^AGE DEPENDANT^
     Route: 037
  5. ONCASPAR [Suspect]
     Active Substance: PEGASPARGASE
     Indication: B PRECURSOR TYPE ACUTE LEUKAEMIA
     Dosage: 900 IU, UNK (1000 IU/SM) (INFUSION OVER 2 HOURS)
     Route: 065
     Dates: start: 20161229
  6. VINCRISTINE [Concomitant]
     Active Substance: VINCRISTINE
     Indication: ACUTE LYMPHOCYTIC LEUKAEMIA RECURRENT
     Dosage: 1.5 MG/SM
     Route: 042
     Dates: start: 20161212, end: 20161226
  7. ZOFRAN [Concomitant]
     Active Substance: ONDANSETRON HYDROCHLORIDE
     Indication: ANTIEMETIC SUPPORTIVE CARE
     Route: 065
  8. DEXAMETHASONE. [Concomitant]
     Active Substance: DEXAMETHASONE
     Indication: ACUTE LYMPHOCYTIC LEUKAEMIA RECURRENT
     Dosage: 20 MG/SM/D
     Route: 048
     Dates: start: 20161212, end: 20161230
  9. NOPIL [Concomitant]
     Active Substance: SULFAMETHOXAZOLE\TRIMETHOPRIM
     Indication: ANTIFUNGAL PROPHYLAXIS
     Route: 065
  10. METHOTREXATE. [Concomitant]
     Active Substance: METHOTREXATE
     Dosage: ^AGE DEPENDANT^
     Route: 037
     Dates: start: 20161212, end: 20161230
  11. CYTARABINE. [Concomitant]
     Active Substance: CYTARABINE
     Indication: ACUTE LYMPHOCYTIC LEUKAEMIA RECURRENT
     Dosage: 2X3 G/SM/D EVERY 3 HOURS
     Route: 042
     Dates: start: 20161226, end: 20161227

REACTIONS (1)
  - Hypoglycaemia [Recovered/Resolved]

NARRATIVE: CASE EVENT DATE: 20161231
